FAERS Safety Report 20617272 (Version 1)
Quarter: 2022Q1

REPORT INFORMATION
  Report Type: Spontaneous
  Country: US (occurrence: None)
  Receive Date: 20220319
  Receipt Date: 20220319
  Transmission Date: 20220423
  Serious: No
  Sender: FDA-Public Use
  Company Number: None

PATIENT
  Age: 40 Year
  Sex: Female
  Weight: 79.2 kg

DRUGS (9)
  1. CEFDINIR [Suspect]
     Active Substance: CEFDINIR
     Indication: Sinusitis
     Dosage: FREQUENCY : TWICE A DAY?QUANTITY: 20 CAPSULES
     Route: 048
  2. METHADONE [Concomitant]
     Active Substance: METHADONE HYDROCHLORIDE
  3. VITAMIN D3 [Concomitant]
     Active Substance: CHOLECALCIFEROL
  4. PROBIOTICS NOS [Concomitant]
     Active Substance: PROBIOTICS NOS
  5. MAGNESIUM [Concomitant]
     Active Substance: MAGNESIUM
  6. VITAMINS [Concomitant]
     Active Substance: VITAMINS
  7. VITAMIN C [Concomitant]
     Active Substance: ASCORBIC ACID
  8. Zinc/elderberry immune support [Concomitant]
  9. QUERCETIN [Concomitant]
     Active Substance: QUERCETIN

REACTIONS (5)
  - Headache [None]
  - Tremor [None]
  - Influenza like illness [None]
  - Asthenia [None]
  - Sensory disturbance [None]

NARRATIVE: CASE EVENT DATE: 20220313
